FAERS Safety Report 4693552-8 (Version None)
Quarter: 2005Q2

REPORT INFORMATION
  Report Type: 
  Country: None (occurrence: None)
  Receive Date: 20050617
  Receipt Date: 20041208
  Transmission Date: 20051028
  Serious: Yes (Hospitalization)
  Sender: FDA-Public Use
  Company Number: NO-ROCHE-388724

PATIENT
  Age: 54 Year
  Sex: Male

DRUGS (6)
  1. CLONAZEPAM [Suspect]
     Indication: ANXIETY
     Dosage: DOSAGE REPORTED AS UP TO 2 MG DAILY.
     Route: 048
     Dates: start: 19910615, end: 20010615
  2. CLONAZEPAM [Suspect]
     Route: 048
     Dates: start: 20010615, end: 20040615
  3. CLONAZEPAM [Suspect]
     Route: 048
     Dates: start: 20040615
  4. ZOCOR [Suspect]
     Route: 048
  5. ZOCOR [Suspect]
     Route: 048
     Dates: start: 19970615, end: 20050603
  6. AZITROMAX [Suspect]
     Indication: DRUG USE FOR UNKNOWN INDICATION
     Route: 048
     Dates: start: 20050528, end: 20050530

REACTIONS (8)
  - ANXIETY [None]
  - ERYTHEMA [None]
  - MYOCARDIAL INFARCTION [None]
  - PANCREATITIS [None]
  - RASH MORBILLIFORM [None]
  - RASH PRURITIC [None]
  - TINNITUS [None]
  - URTICARIA [None]
